FAERS Safety Report 13990711 (Version 1)
Quarter: 2017Q3

REPORT INFORMATION
  Report Type: Spontaneous
  Country: US (occurrence: US)
  Receive Date: 20170920
  Receipt Date: 20170920
  Transmission Date: 20171128
  Serious: Yes (Other)
  Sender: FDA-Public Use
  Company Number: US-PFIZER INC-2017405658

PATIENT
  Age: 67 Year
  Sex: Female
  Weight: 103.42 kg

DRUGS (5)
  1. CARVEDILOL. [Concomitant]
     Active Substance: CARVEDILOL
     Indication: HYPERTENSION
     Dosage: 12.5 MG, 2X/DAY (12.5MG TABLET BY MOUTH TWICE DAILY)
     Route: 048
     Dates: start: 201707
  2. ELIQUIS [Concomitant]
     Active Substance: APIXABAN
     Indication: BLOOD DISORDER
     Dosage: 5 MG, 2X/DAY (5MG TABLET BY MOUTH TWICE DAILY)
     Route: 048
     Dates: start: 201707
  3. IBRANCE [Suspect]
     Active Substance: PALBOCICLIB
     Dosage: 100 MG, DAILY (100MG CAPSULE BY MOUTH EVERY DAY)
     Route: 048
     Dates: start: 20170912
  4. LETROZOLE. [Suspect]
     Active Substance: LETROZOLE
     Indication: CHEMOTHERAPY
     Dosage: 2.5 MG, DAILY (2.5MG TABLETS BY MOUTH DAILY)
     Route: 048
     Dates: start: 201707
  5. IBRANCE [Suspect]
     Active Substance: PALBOCICLIB
     Indication: BREAST CANCER METASTATIC
     Dosage: 125 MG
     Dates: end: 20170830

REACTIONS (6)
  - Full blood count decreased [Unknown]
  - Blood magnesium decreased [Unknown]
  - Constipation [Not Recovered/Not Resolved]
  - Pneumonia [Recovering/Resolving]
  - Nausea [Unknown]
  - Cough [Unknown]

NARRATIVE: CASE EVENT DATE: 20170830
